FAERS Safety Report 23825211 (Version 2)
Quarter: 2024Q2

REPORT INFORMATION
  Report Type: Spontaneous
  Country: US (occurrence: US)
  Receive Date: 20240507
  Receipt Date: 20240523
  Transmission Date: 20240716
  Serious: Yes (Other)
  Sender: FDA-Public Use
  Company Number: US-LUNDBECK-DKLU3076921

PATIENT
  Age: 62 Year
  Sex: Female

DRUGS (2)
  1. VYEPTI [Suspect]
     Active Substance: EPTINEZUMAB-JJMR
     Indication: Migraine
     Route: 041
  2. VYEPTI [Suspect]
     Active Substance: EPTINEZUMAB-JJMR
     Route: 041

REACTIONS (11)
  - Pulmonary congestion [Unknown]
  - Swelling face [Unknown]
  - Acne cystic [Unknown]
  - Ear pain [Unknown]
  - Increased viscosity of upper respiratory secretion [Unknown]
  - Pruritus [Unknown]
  - Urticaria [Unknown]
  - Urinary tract disorder [Unknown]
  - Nasal congestion [Unknown]
  - Cough [Unknown]
  - Euphoric mood [Unknown]
